FAERS Safety Report 10947717 (Version 1)
Quarter: 2015Q1

REPORT INFORMATION
  Report Type: Spontaneous
  Country: JP (occurrence: JP)
  Receive Date: 20150324
  Receipt Date: 20150324
  Transmission Date: 20150721
  Serious: Yes (Hospitalization)
  Sender: FDA-Public Use
  Company Number: JP-BRISTOL-MYERS SQUIBB COMPANY-BMS-2015-017264

PATIENT
  Age: 76 Year
  Sex: Male

DRUGS (1)
  1. HYDREA [Suspect]
     Active Substance: HYDROXYUREA
     Indication: POLYCYTHAEMIA
     Route: 048

REACTIONS (4)
  - Pyrexia [Unknown]
  - White blood cell count decreased [Unknown]
  - Cellulitis [Unknown]
  - Impaired healing [Unknown]
